FAERS Safety Report 4876428-2 (Version None)
Quarter: 2006Q1

REPORT INFORMATION
  Report Type: 
  Country: None (occurrence: None)
  Receive Date: 20060106
  Receipt Date: 20051229
  Transmission Date: 20060701
  Serious: Yes (Death, Hospitalization)
  Sender: FDA-Public Use
  Company Number: GXKR2005US02217

PATIENT
  Age: 72 Year
  Sex: Female

DRUGS (10)
  1. METFORMIN HCL [Suspect]
     Indication: DIABETES MELLITUS
  2. ENALAPRIL MALEATE [Suspect]
  3. VERAPAMIL [Suspect]
  4. FUROSEMIDE [Suspect]
  5. PREDNISONE (NGX) (PREDNISONE) [Suspect]
  6. TOLBUTAMIDE (NGX) (TOLBUTAMIDE) [Suspect]
  7. SALBUTAMOL (NGX) (SALBUTAMOL) [Suspect]
  8. WARFARIN SODIUM [Suspect]
  9. IPRATROPIUM BROMIDE [Suspect]
  10. TERFENADINE [Suspect]

REACTIONS (10)
  - BLOOD GLUCOSE INCREASED [None]
  - BLOOD LACTIC ACID INCREASED [None]
  - DYSPNOEA [None]
  - GASTROINTESTINAL HAEMORRHAGE [None]
  - HYPOTENSION [None]
  - INFECTION [None]
  - LACTIC ACIDOSIS [None]
  - METABOLIC ACIDOSIS [None]
  - RENAL FAILURE [None]
  - RESPIRATORY FAILURE [None]
